FAERS Safety Report 7272245-7 (Version None)
Quarter: 2011Q1

REPORT INFORMATION
  Report Type: 
  Country: None (occurrence: None)
  Receive Date: 20110131
  Receipt Date: 20110131
  Transmission Date: 20110831
  Serious: Yes (Death)
  Sender: FDA-Public Use
  Company Number: None

PATIENT
  Age: 58 Year
  Sex: Male
  Weight: 90.7194 kg

DRUGS (2)
  1. LACTULOSE [Suspect]
     Indication: CARDIAC OPERATION
     Dates: start: 20100511, end: 20100511
  2. ALDACTONE [Suspect]
     Indication: CARDIAC OPERATION
     Dates: start: 20100511, end: 20100511

REACTIONS (1)
  - UNEVALUABLE EVENT [None]
